FAERS Safety Report 20339582 (Version 1)
Quarter: 2022Q1

REPORT INFORMATION
  Report Type: Spontaneous
  Country: JP (occurrence: JP)
  Receive Date: 20220117
  Receipt Date: 20220117
  Transmission Date: 20220424
  Serious: Yes (Other)
  Sender: FDA-Public Use
  Company Number: JP-NOVARTISPH-NVSJ2022JP000923

PATIENT

DRUGS (1)
  1. COSENTYX [Suspect]
     Active Substance: SECUKINUMAB
     Indication: Psoriasis
     Dosage: 300 MG, 4W
     Route: 058
     Dates: start: 20210104

REACTIONS (4)
  - Erythema multiforme [Recovered/Resolved]
  - Eczema nummular [Unknown]
  - Hyperkeratosis [Not Recovered/Not Resolved]
  - Therapeutic product effect incomplete [Unknown]
